FAERS Safety Report 21731905 (Version 1)
Quarter: 2022Q4

REPORT INFORMATION
  Report Type: Spontaneous
  Country: US (occurrence: US)
  Receive Date: 20221215
  Receipt Date: 20221215
  Transmission Date: 20230113
  Serious: Yes (Hospitalization, Other)
  Sender: FDA-Public Use
  Company Number: US-002147023-NVSC2022US285920

PATIENT
  Age: 69 Year
  Sex: Male

DRUGS (19)
  1. LINEZOLID [Suspect]
     Active Substance: LINEZOLID
     Indication: Pulmonary tuberculosis
     Dosage: UNK
     Route: 065
  2. LINEZOLID [Suspect]
     Active Substance: LINEZOLID
     Dosage: UNK, (LNZ AND LEVO STARTED) 7 DAYS 18 MO REGIMEN
     Route: 065
     Dates: start: 20220930
  3. ISONIAZID [Suspect]
     Active Substance: ISONIAZID
     Indication: Pulmonary tuberculosis
     Dosage: UNK, E STARTED AT OH AND UPON DISCHARGE SELF-ADMINISTERED
     Route: 065
     Dates: start: 20220822
  4. ISONIAZID [Suspect]
     Active Substance: ISONIAZID
     Dosage: UNK, (PZA STOPPED) 7 DAYS 9 MO REGIMEN
     Route: 065
     Dates: start: 20220915
  5. ISONIAZID [Suspect]
     Active Substance: ISONIAZID
     Dosage: 150 MG, QD, X 2 DAYS THE STOPPED
     Route: 048
     Dates: start: 20221026
  6. ETHAMBUTOL [Suspect]
     Active Substance: ETHAMBUTOL HYDROCHLORIDE
     Indication: Pulmonary tuberculosis
     Dosage: UNK, E STARTED AT OH AND UPON DISCHARGE SELF-ADMINISTERED
     Route: 065
     Dates: start: 20220822
  7. ETHAMBUTOL [Suspect]
     Active Substance: ETHAMBUTOL HYDROCHLORIDE
     Dosage: UNK, (PZA STOPPED) 7 DAYS 9 MO REGIMEN
     Route: 065
     Dates: start: 20220915
  8. RIFAMPIN [Suspect]
     Active Substance: RIFAMPIN
     Indication: Pulmonary tuberculosis
     Dosage: UNK, E STARTED AT OH AND UPON DISCHARGE SELF-ADMINISTERED
     Route: 065
     Dates: start: 20220822
  9. RIFAMPIN [Suspect]
     Active Substance: RIFAMPIN
     Dosage: UNK, (PZA STOPPED) 7 DAYS 9 MO REGIMEN
     Route: 065
     Dates: start: 20220915
  10. RIFAMPIN [Suspect]
     Active Substance: RIFAMPIN
     Dosage: UNK, CURRENT REGIMEN R AND CS 250 MG PO QAM AND 125 MG PO QPM WITH B 6 50 MG PO QDAY
     Route: 065
     Dates: start: 20221007
  11. PYRAZINAMIDE [Suspect]
     Active Substance: PYRAZINAMIDE
     Indication: Pulmonary tuberculosis
     Dosage: UNK,  STARTED AT OH AND UPON DISCHARGE SELF-ADMINISTERED
     Route: 065
     Dates: start: 20220822
  12. PYRAZINAMIDE [Suspect]
     Active Substance: PYRAZINAMIDE
     Dosage: UNK, (PZA STOPPED) 7 DAYS 9 MO REGIMEN
     Route: 065
     Dates: start: 20220915
  13. LEVORPHANOL [Suspect]
     Active Substance: LEVORPHANOL
     Indication: Pulmonary tuberculosis
     Dosage: UNK, (LNZ AND LEVO STARTED) 7 DAYS 18 MO REGIMEN
     Route: 065
     Dates: start: 20220930
  14. DOT [Concomitant]
     Indication: Product used for unknown indication
     Dosage: UNK
     Route: 065
     Dates: start: 20220902
  15. RE [Concomitant]
     Indication: Product used for unknown indication
     Dosage: UNK
     Route: 065
     Dates: start: 20220922
  16. E [Concomitant]
     Indication: Product used for unknown indication
     Dosage: UNK
     Route: 065
     Dates: start: 20220929
  17. LNZ [Concomitant]
     Indication: Product used for unknown indication
     Dosage: UNK
     Route: 065
     Dates: start: 20221007
  18. LEVOBUPIVACAINE [Concomitant]
     Active Substance: LEVOBUPIVACAINE
     Indication: Product used for unknown indication
     Dosage: UNK
     Route: 065
  19. R [Concomitant]
     Indication: Product used for unknown indication
     Dosage: UNK
     Route: 065
     Dates: start: 20221018

REACTIONS (8)
  - Liver function test increased [Unknown]
  - Pyelonephritis [Unknown]
  - Visual impairment [Unknown]
  - Productive cough [Unknown]
  - Myalgia [Unknown]
  - Pain in extremity [Unknown]
  - Diplopia [Unknown]
  - Rash [Unknown]
